FAERS Safety Report 10577679 (Version 1)
Quarter: 2014Q4

REPORT INFORMATION
  Report Type: Spontaneous
  Country: US (occurrence: US)
  Receive Date: 20141111
  Receipt Date: 20141111
  Transmission Date: 20150529
  Serious: Yes (Death, Other)
  Sender: FDA-Public Use
  Company Number: US-ABBVIE-14P-163-1305418-00

PATIENT
  Age: 22 Year
  Sex: Male

DRUGS (1)
  1. ANDROGEL [Suspect]
     Active Substance: TESTOSTERONE
     Indication: PRODUCT USED FOR UNKNOWN INDICATION
     Route: 065

REACTIONS (5)
  - Pulmonary embolism [Fatal]
  - Muscular weakness [Unknown]
  - Deep vein thrombosis [Fatal]
  - Irritability [Unknown]
  - Fatigue [Unknown]

NARRATIVE: CASE EVENT DATE: 20090521
